FAERS Safety Report 7274629-X (Version None)
Quarter: 2011Q1

REPORT INFORMATION
  Report Type: 
  Country: None (occurrence: None)
  Receive Date: 20110204
  Receipt Date: 20110131
  Transmission Date: 20110831
  Serious: Yes (Hospitalization)
  Sender: FDA-Public Use
  Company Number: JP-BRISTOL-MYERS SQUIBB COMPANY-15429210

PATIENT
  Age: 56 Year
  Sex: Male
  Weight: 49 kg

DRUGS (2)
  1. XELODA [Suspect]
     Indication: GASTROOESOPHAGEAL CANCER
     Dosage: ON DAY 1-15; RECENT INF:02DEC2010,TABS
     Route: 048
     Dates: start: 20100812
  2. CISPLATIN [Suspect]
     Indication: GASTROOESOPHAGEAL CANCER
     Dosage: ON DAY 1 OF CYCLE RECENT INF:26NOV2010
     Route: 042
     Dates: start: 20100812

REACTIONS (1)
  - DIZZINESS [None]
